FAERS Safety Report 5036290-4 (Version None)
Quarter: 2006Q2

REPORT INFORMATION
  Report Type: 
  Country: None (occurrence: None)
  Receive Date: 20060601
  Receipt Date: 20051205
  Transmission Date: 20061013
  Serious: No
  Sender: FDA-Public Use
  Company Number: US200512000585

PATIENT
  Age: 46 Year
  Sex: Female

DRUGS (7)
  1. CYMBALTA [Suspect]
     Indication: PAIN MANAGEMENT
     Dosage: 30 MG, DAILY (1/D)
     Dates: start: 20051121, end: 20051203
  2. FLUOXETINE  /NA/(FLUOXETINE) [Concomitant]
  3. CLONAZEPAM [Concomitant]
  4. HORMONES AND RELATED AGENTS [Concomitant]
  5. ASPIRIN [Concomitant]
  6. CRESTOR [Concomitant]
  7. ZETIA [Concomitant]

REACTIONS (4)
  - ANXIETY DISORDER [None]
  - HALLUCINATION, VISUAL [None]
  - INSOMNIA [None]
  - RESTLESSNESS [None]
